FAERS Safety Report 25741474 (Version 1)
Quarter: 2025Q3

REPORT INFORMATION
  Report Type: Spontaneous
  Country: GB (occurrence: GB)
  Receive Date: 20250829
  Receipt Date: 20250829
  Transmission Date: 20251020
  Serious: Yes (Other)
  Sender: BAYER HEALTHCARE PHARMACEUTICALS INC.
  Company Number: None

PATIENT
  Sex: Male

DRUGS (1)
  1. GADOBUTROL [Suspect]
     Active Substance: GADOBUTROL
     Indication: Magnetic resonance imaging
     Route: 042
     Dates: start: 20250827, end: 20250827

REACTIONS (5)
  - Urticaria [Recovered/Resolved]
  - Swelling face [Recovering/Resolving]
  - Dysphagia [None]
  - Speech disorder [None]
  - Hot flush [None]

NARRATIVE: CASE EVENT DATE: 20250827
